FAERS Safety Report 8033466-9 (Version None)
Quarter: 2012Q1

REPORT INFORMATION
  Report Type: 
  Country: None (occurrence: None)
  Receive Date: 20120110
  Receipt Date: 20100721
  Transmission Date: 20120608
  Serious: Yes (Other)
  Sender: FDA-Public Use
  Company Number: AU-ROCHE-1024069

PATIENT
  Age: 58 Year
  Sex: Male

DRUGS (6)
  1. FLUOROURACIL [Concomitant]
     Indication: COLON CANCER
     Dates: end: 20090201
  2. OXALIPLATIN [Concomitant]
     Indication: COLON CANCER
  3. CAPECITABINE [Suspect]
     Indication: COLON CANCER
  4. BEVACIZUMAB [Suspect]
     Indication: COLON CANCER
     Dates: start: 20080101, end: 20090201
  5. IRINOTECAN HCL [Concomitant]
     Indication: COLON CANCER
     Dates: end: 20090201
  6. LEUCOVORIN CALCIUM [Concomitant]
     Indication: COLON CANCER
     Dates: end: 20090201

REACTIONS (1)
  - DISEASE PROGRESSION [None]
